FAERS Safety Report 17138700 (Version 1)
Quarter: 2019Q4

REPORT INFORMATION
  Report Type: Spontaneous
  Country: US (occurrence: US)
  Receive Date: 20191119
  Receipt Date: 20191119
  Transmission Date: 20200122
  Serious: Yes (Hospitalization, Other)
  Sender: FDA-Public Use
  Company Number: None

PATIENT
  Age: 78 Year
  Sex: Male
  Weight: 89 kg

DRUGS (1)
  1. DAPTOMYCIN. [Suspect]
     Active Substance: DAPTOMYCIN
     Indication: LOCALISED INFECTION
     Route: 042
     Dates: start: 20190905, end: 20191002

REACTIONS (2)
  - Pneumonia [None]
  - Eosinophilia [None]

NARRATIVE: CASE EVENT DATE: 20191002
